FAERS Safety Report 9989026 (Version 1)
Quarter: 2014Q1

REPORT INFORMATION
  Report Type: Report from Study
  Country: US (occurrence: US)
  Receive Date: 20140310
  Receipt Date: 20140310
  Transmission Date: 20141002
  Serious: No
  Sender: FDA-Public Use
  Company Number: US-ABBVIE-13P-163-1128944-00

PATIENT
  Age: 34 Year
  Sex: Female
  Weight: 105.78 kg

DRUGS (4)
  1. HUMIRA [Suspect]
     Indication: RHEUMATOID ARTHRITIS
     Route: 058
     Dates: start: 2007, end: 2007
  2. HUMIRA [Suspect]
     Route: 058
     Dates: start: 2007, end: 201302
  3. HUMIRA [Suspect]
     Route: 058
     Dates: start: 201304, end: 201304
  4. HUMIRA [Suspect]
     Route: 058
     Dates: start: 201305

REACTIONS (3)
  - Joint stiffness [Not Recovered/Not Resolved]
  - Arthralgia [Not Recovered/Not Resolved]
  - Drug ineffective [Not Recovered/Not Resolved]
